FAERS Safety Report 12791545 (Version 1)
Quarter: 2016Q3

REPORT INFORMATION
  Report Type: Spontaneous
  Country: US (occurrence: US)
  Receive Date: 20160929
  Receipt Date: 20160929
  Transmission Date: 20161109
  Serious: Yes (Life-Threatening)
  Sender: FDA-Public Use
  Company Number: None

PATIENT
  Age: 34 Year
  Sex: Female
  Weight: 60.75 kg

DRUGS (4)
  1. CLARITIN [Suspect]
     Active Substance: LORATADINE
     Indication: MULTIPLE ALLERGIES
     Dosage: ?          QUANTITY:1 PUFF(S);?
     Route: 055
     Dates: start: 20001001, end: 20031001
  2. ADVAIR HFA [Suspect]
     Active Substance: FLUTICASONE PROPIONATE\SALMETEROL XINAFOATE
     Indication: ASTHMA
     Dosage: ?          QUANTITY:1 PUFF(S);?
     Route: 055
     Dates: start: 20001001, end: 20031001
  3. PROVIGIL [Concomitant]
     Active Substance: MODAFINIL
  4. NUVIGIL [Concomitant]
     Active Substance: ARMODAFINIL

REACTIONS (5)
  - Middle ear disorder [None]
  - Narcolepsy [None]
  - Lung disorder [None]
  - Eustachian tube dysfunction [None]
  - Paralysis [None]

NARRATIVE: CASE EVENT DATE: 20020715
